FAERS Safety Report 25861312 (Version 2)
Quarter: 2025Q4

REPORT INFORMATION
  Report Type: Spontaneous
  Country: CN (occurrence: CN)
  Receive Date: 20250929
  Receipt Date: 20251125
  Transmission Date: 20260117
  Serious: Yes (Other)
  Sender: JIANGSU HENGRUI
  Company Number: CN-JIANGSU HENGRUI PHARMACEUTICALS CO., LTD.-H2025001206673

PATIENT

DRUGS (32)
  1. PACLITAXEL [Suspect]
     Active Substance: PACLITAXEL
     Indication: Breast cancer stage IV
     Dosage: 194 MG, Q4W, D1, D8, D15
  2. PACLITAXEL [Suspect]
     Active Substance: PACLITAXEL
     Dosage: 194 MG, Q4W, D1, D8, D15
  3. PACLITAXEL [Suspect]
     Active Substance: PACLITAXEL
     Dosage: 194 MG, Q4W, D1, D8, D15
  4. PACLITAXEL [Suspect]
     Active Substance: PACLITAXEL
     Dosage: 194 MG, Q4W, D1, D8, D15
  5. PACLITAXEL [Suspect]
     Active Substance: PACLITAXEL
     Dosage: 194 MG, Q4W, D1, D8, D15
  6. PACLITAXEL [Suspect]
     Active Substance: PACLITAXEL
     Dosage: 194 MG, Q4W
  7. PACLITAXEL [Suspect]
     Active Substance: PACLITAXEL
     Dosage: 194 MG, Q4W
  8. PACLITAXEL [Suspect]
     Active Substance: PACLITAXEL
     Dosage: 194 MG, Q4W
  9. PACLITAXEL [Suspect]
     Active Substance: PACLITAXEL
     Dosage: 194 MG, Q4W
  10. PACLITAXEL [Suspect]
     Active Substance: PACLITAXEL
     Dosage: 194 MG, Q4W
  11. PACLITAXEL [Suspect]
     Active Substance: PACLITAXEL
     Dosage: 194 MG, Q4W
  12. PACLITAXEL [Suspect]
     Active Substance: PACLITAXEL
     Dosage: 194 MG, Q4W
  13. PACLITAXEL [Suspect]
     Active Substance: PACLITAXEL
     Dosage: 194 MG, Q4W
  14. PACLITAXEL [Suspect]
     Active Substance: PACLITAXEL
     Dosage: 194 MG, Q4W
  15. PACLITAXEL [Suspect]
     Active Substance: PACLITAXEL
     Dosage: 194 MG, Q4W
  16. PACLITAXEL [Suspect]
     Active Substance: PACLITAXEL
     Dosage: 194 MG, Q4W, D1, D8, D15
  17. PACLITAXEL [Suspect]
     Active Substance: PACLITAXEL
     Dosage: 194 MG, Q4W, D1, D8, D15
  18. PACLITAXEL [Suspect]
     Active Substance: PACLITAXEL
     Dosage: 194 MG, Q4W, D1, D8, D15
  19. PACLITAXEL [Suspect]
     Active Substance: PACLITAXEL
     Dosage: 194 MG, Q4W, D1, D8, D15
  20. PACLITAXEL [Suspect]
     Active Substance: PACLITAXEL
     Dosage: 194 MG, Q4W, D1, D8, D15
  21. PACLITAXEL [Suspect]
     Active Substance: PACLITAXEL
     Dosage: 194 MG, Q4W, D1, D8, D15
  22. PACLITAXEL [Suspect]
     Active Substance: PACLITAXEL
     Dosage: 194 MG, Q4W
  23. EUTHYROX [Concomitant]
     Active Substance: LEVOTHYROXINE SODIUM
     Indication: Prophylaxis
     Dosage: 150 UG, QD
  24. BICYCLOL [Concomitant]
     Active Substance: BICYCLOL
     Indication: Aspartate aminotransferase increased
     Dosage: 50 MG, TID
  25. Shuilinjia [Concomitant]
     Indication: Aspartate aminotransferase increased
     Dosage: 140 MG, TID
  26. LEUCOGEN [Concomitant]
     Active Substance: LEUCOGEN
     Indication: Prophylaxis
     Dosage: 40 MG, TID
  27. Qijiao Sheng Bai capsules [Concomitant]
     Indication: Prophylaxis
     Dosage: 0.2 G, TID
  28. Shenqi Shiyiwei granules [Concomitant]
     Indication: Prophylaxis
     Dosage: 2 G, TID
  29. METHYLCOBALAMIN [Concomitant]
     Active Substance: METHYLCOBALAMIN
     Indication: Neurotoxicity
     Dosage: 0.5 MG, TID
  30. HERBALS\DIAMMONIUM GLYCYRRHIZINATE [Concomitant]
     Active Substance: HERBALS\DIAMMONIUM GLYCYRRHIZINATE
     Indication: Aspartate aminotransferase increased
     Dosage: 150 MG, TID
  31. MECAPEGFILGRASTIM [Concomitant]
     Active Substance: MECAPEGFILGRASTIM
     Indication: Prophylaxis
     Dosage: 6 MG, QD
  32. MECAPEGFILGRASTIM [Concomitant]
     Active Substance: MECAPEGFILGRASTIM
     Indication: Prophylaxis

REACTIONS (2)
  - Lymphangiosis carcinomatosa [Recovering/Resolving]
  - Therapeutic product effect decreased [Unknown]
